FAERS Safety Report 25504696 (Version 1)
Quarter: 2025Q3

REPORT INFORMATION
  Report Type: Spontaneous
  Country: US (occurrence: None)
  Receive Date: 20250702
  Receipt Date: 20250702
  Transmission Date: 20251020
  Serious: Yes (Hospitalization, Disabling, Other)
  Sender: FDA-CTU
  Company Number: None

PATIENT
  Age: 49 Year
  Sex: Male
  Weight: 90 kg

DRUGS (1)
  1. HERBALS\MITRAGYNINE [Suspect]
     Active Substance: HERBALS\MITRAGYNINE
     Indication: Pain
     Route: 048
     Dates: start: 20230101, end: 20250701

REACTIONS (9)
  - Abnormal behaviour [None]
  - Withdrawal syndrome [None]
  - Drug dependence [None]
  - Panic attack [None]
  - Suicidal ideation [None]
  - Insomnia [None]
  - Vomiting [None]
  - Hyperhidrosis [None]
  - Quality of life decreased [None]

NARRATIVE: CASE EVENT DATE: 20250629
